FAERS Safety Report 13980245 (Version 1)
Quarter: 2017Q3

REPORT INFORMATION
  Report Type: Spontaneous
  Country: CA (occurrence: CA)
  Receive Date: 20170917
  Receipt Date: 20170917
  Transmission Date: 20171128
  Serious: Yes (Other)
  Sender: FDA-Public Use
  Company Number: CA-TEVA-807378ACC

PATIENT
  Age: 57 Year
  Sex: Female
  Weight: 68.1 kg

DRUGS (2)
  1. TEVA-PROGESTERONE [Suspect]
     Active Substance: PROGESTERONE
     Indication: MENORRHAGIA
     Route: 048
  2. RHOVANE [Concomitant]
     Active Substance: ZOPICLONE

REACTIONS (2)
  - Uterine haemorrhage [Recovered/Resolved]
  - Product substitution issue [Recovered/Resolved]
